FAERS Safety Report 21693978 (Version 2)
Quarter: 2023Q1

REPORT INFORMATION
  Report Type: Report from Study
  Country: CO (occurrence: CO)
  Receive Date: 20221207
  Receipt Date: 20230112
  Transmission Date: 20230417
  Serious: Yes (Other)
  Sender: FDA-Public Use
  Company Number: CO-BAYER-2022A167609

PATIENT
  Age: 83 Year
  Sex: Male

DRUGS (6)
  1. EYLEA [Suspect]
     Active Substance: AFLIBERCEPT
     Indication: Retinal vein occlusion
     Dosage: 2 MG, ONCE, LEFT EYE , SOLUTION FOR INJECTION, 40 MG/ML
     Route: 031
     Dates: start: 20210318, end: 20210318
  2. EYLEA [Suspect]
     Active Substance: AFLIBERCEPT
     Dosage: 2 MG, ONCE, LEFT EYE , SOLUTION FOR INJECTION, 40 MG/ML
     Route: 031
     Dates: start: 20210520, end: 20210520
  3. EYLEA [Suspect]
     Active Substance: AFLIBERCEPT
     Dosage: 2 MG, ONCE, LEFT EYE , SOLUTION FOR INJECTION, 40 MG/ML
     Route: 031
     Dates: start: 20210826, end: 20210826
  4. EYLEA [Suspect]
     Active Substance: AFLIBERCEPT
     Dosage: 2 MG, ONCE, LEFT EYE , SOLUTION FOR INJECTION, 40 MG/ML
     Route: 031
     Dates: start: 20220412, end: 20220412
  5. EYLEA [Suspect]
     Active Substance: AFLIBERCEPT
     Dosage: 2 MG, ONCE, LEFT EYE , SOLUTION FOR INJECTION, 40 MG/ML
     Route: 031
     Dates: start: 20220509, end: 20220509
  6. EYLEA [Suspect]
     Active Substance: AFLIBERCEPT
     Dosage: 2 MG, ONCE, LEFT EYE , SOLUTION FOR INJECTION, 40 MG/ML
     Route: 031
     Dates: start: 20220602, end: 20220602

REACTIONS (3)
  - Blindness unilateral [Unknown]
  - Drug ineffective [Unknown]
  - Visual impairment [Unknown]

NARRATIVE: CASE EVENT DATE: 20221101
